FAERS Safety Report 6753049-8 (Version None)
Quarter: 2010Q2

REPORT INFORMATION
  Report Type: 
  Country: None (occurrence: None)
  Receive Date: 20100602
  Receipt Date: 20100602
  Transmission Date: 20101027
  Serious: Yes (Other)
  Sender: FDA-Public Use
  Company Number: None

PATIENT
  Age: 51 Year
  Sex: Female
  Weight: 54.4316 kg

DRUGS (1)
  1. LYRICA [Suspect]
     Indication: FIBROMYALGIA
     Dosage: 25 MG B.I.D. 047
     Dates: start: 20090820, end: 20100301

REACTIONS (8)
  - BLADDER DISORDER [None]
  - DECREASED APPETITE [None]
  - GASTROINTESTINAL DISORDER [None]
  - GASTROINTESTINAL MOTILITY DISORDER [None]
  - HYPOPHAGIA [None]
  - MUSCLE STRAIN [None]
  - PUPILLARY REFLEX IMPAIRED [None]
  - URETHRAL DISORDER [None]
